FAERS Safety Report 21408329 (Version 1)
Quarter: 2022Q4

REPORT INFORMATION
  Report Type: Spontaneous
  Country: US (occurrence: None)
  Receive Date: 20221004
  Receipt Date: 20221004
  Transmission Date: 20230113
  Serious: No
  Sender: FDA-Public Use
  Company Number: None

PATIENT
  Age: 82 Year
  Sex: Female
  Weight: 59.87 kg

DRUGS (1)
  1. XIIDRA [Suspect]
     Active Substance: LIFITEGRAST

REACTIONS (5)
  - Drug ineffective [None]
  - Vision blurred [None]
  - Dysgeusia [None]
  - Dysphonia [None]
  - Eye irritation [None]

NARRATIVE: CASE EVENT DATE: 20220309
